FAERS Safety Report 4761181-3 (Version None)
Quarter: 2005Q3

REPORT INFORMATION
  Report Type: 
  Country: None (occurrence: None)
  Receive Date: 20050906
  Receipt Date: 20050812
  Transmission Date: 20060218
  Serious: Yes (Hospitalization)
  Sender: FDA-Public Use
  Company Number: AU-BOEHRINGER INGELHEIM PHARMACEUTICALS, INC.-2005-BP-13944AU

PATIENT
  Sex: Male
  Weight: 77 kg

DRUGS (6)
  1. MOBIC [Suspect]
     Indication: OSTEOARTHRITIS
     Route: 048
     Dates: start: 20050505, end: 20050721
  2. AROPAX [Concomitant]
     Route: 048
  3. MADOPAR [Concomitant]
     Dosage: 300/75 MG/MG
     Route: 048
  4. SPIRIVA [Concomitant]
     Route: 055
  5. SERETIDE INHALER (FLUTICASONE/SALMETEROL) [Concomitant]
     Dosage: 1000/100 MCG/MCG
     Route: 055
  6. PANAMAX [Concomitant]
     Route: 048

REACTIONS (6)
  - CIRCULATORY COLLAPSE [None]
  - DUODENAL ULCER [None]
  - DUODENAL ULCER HAEMORRHAGE [None]
  - GASTRIC HAEMORRHAGE [None]
  - LOSS OF CONSCIOUSNESS [None]
  - PALPITATIONS [None]
